FAERS Safety Report 25385444 (Version 1)
Quarter: 2025Q2

REPORT INFORMATION
  Report Type: Spontaneous
  Country: BR (occurrence: BR)
  Receive Date: 20250602
  Receipt Date: 20250602
  Transmission Date: 20250717
  Serious: Yes (Other)
  Sender: FERRING
  Company Number: BR-FERRINGPH-2025FE02764

PATIENT
  Age: 11 Year
  Sex: Male
  Weight: 99.2 kg

DRUGS (1)
  1. DDAVP [Suspect]
     Active Substance: DESMOPRESSIN ACETATE
     Indication: Diabetes insipidus
     Route: 045

REACTIONS (1)
  - Obesity [Unknown]
